FAERS Safety Report 19196465 (Version 2)
Quarter: 2022Q3

REPORT INFORMATION
  Report Type: Spontaneous
  Country: US (occurrence: US)
  Receive Date: 20210429
  Receipt Date: 20220408
  Transmission Date: 20221026
  Serious: No
  Sender: FDA-Public Use
  Company Number: US-INCYTE CORPORATION-2021IN003492

PATIENT

DRUGS (3)
  1. JAKAFI [Suspect]
     Active Substance: RUXOLITINIB
     Indication: Chronic graft versus host disease
     Dosage: 10 MILLIGRAM, BID
     Route: 048
     Dates: start: 20200304
  2. JAKAFI [Suspect]
     Active Substance: RUXOLITINIB
     Indication: Chronic myeloid leukaemia
     Dosage: 5 MILLIGRAM, QD
     Route: 048
     Dates: start: 202202
  3. JAKAFI [Suspect]
     Active Substance: RUXOLITINIB
     Indication: Myeloproliferative neoplasm

REACTIONS (3)
  - Intentional product use issue [Unknown]
  - Product availability issue [Unknown]
  - Off label use [Unknown]

NARRATIVE: CASE EVENT DATE: 20200304
